FAERS Safety Report 19755098 (Version 1)
Quarter: 2021Q3

REPORT INFORMATION
  Report Type: Report from Study
  Country: US (occurrence: US)
  Receive Date: 20210827
  Receipt Date: 20210827
  Transmission Date: 20211014
  Serious: Yes (Hospitalization)
  Sender: FDA-Public Use
  Company Number: US-ALNYLAM PHARMACEUTICALS, INC.-ALN-2021-001112

PATIENT

DRUGS (1)
  1. ONPATTRO [Suspect]
     Active Substance: PATISIRAN SODIUM
     Indication: AMYLOIDOSIS SENILE
     Dosage: UNK
     Route: 042
     Dates: start: 20201029

REACTIONS (19)
  - Fatigue [Unknown]
  - Asthenia [Unknown]
  - Laboratory test abnormal [Unknown]
  - Pain [Unknown]
  - Asthenia [Recovering/Resolving]
  - Balance disorder [Unknown]
  - Hypoaesthesia [Unknown]
  - Family stress [Unknown]
  - Physical abuse [Unknown]
  - Limb discomfort [Unknown]
  - Malabsorption [Unknown]
  - Cardiac valve disease [Unknown]
  - Cardiac amyloidosis [Unknown]
  - Vertigo [Unknown]
  - Anaemia [Not Recovered/Not Resolved]
  - Atrial fibrillation [Unknown]
  - Weight decreased [Unknown]
  - Appetite disorder [Unknown]
  - Verbal abuse [Unknown]

NARRATIVE: CASE EVENT DATE: 20210506
